FAERS Safety Report 20579135 (Version 5)
Quarter: 2022Q3

REPORT INFORMATION
  Report Type: Report from Study
  Country: US (occurrence: US)
  Receive Date: 20220310
  Receipt Date: 20220718
  Transmission Date: 20221026
  Serious: Yes (Other)
  Sender: FDA-Public Use
  Company Number: US-NOVARTISPH-NVSC2022US054617

PATIENT
  Age: 57 Year
  Sex: Male

DRUGS (2)
  1. COSENTYX [Suspect]
     Active Substance: SECUKINUMAB
     Indication: Ankylosing spondylitis
     Dosage: 150 MG, QW (FOR 5 WEEKS AND THEN Q4 WEEKS)
     Route: 058
     Dates: start: 202202
  2. COSENTYX [Suspect]
     Active Substance: SECUKINUMAB
     Dosage: UNK (THIRD LOADING)
     Route: 065
     Dates: start: 20220227

REACTIONS (5)
  - Blood pressure increased [Recovered/Resolved]
  - Neck pain [Unknown]
  - Musculoskeletal stiffness [Unknown]
  - Sciatica [Unknown]
  - Spinal pain [Unknown]

NARRATIVE: CASE EVENT DATE: 20220227
